FAERS Safety Report 6136335-4 (Version None)
Quarter: 2009Q1

REPORT INFORMATION
  Report Type: 
  Country: None (occurrence: None)
  Receive Date: 20090330
  Receipt Date: 20090320
  Transmission Date: 20090719
  Serious: Yes (Hospitalization)
  Sender: FDA-Public Use
  Company Number: CA-AMGEN-US253870

PATIENT
  Sex: Male
  Weight: 94.5 kg

DRUGS (17)
  1. PANITUMUMAB [Suspect]
     Indication: COLORECTAL CANCER
     Route: 042
     Dates: start: 20071017
  2. FLUOROURACIL [Suspect]
     Route: 065
     Dates: end: 20071108
  3. OXALIPLATIN [Suspect]
     Route: 065
     Dates: end: 20071108
  4. LEUCOVORIN CALCIUM [Suspect]
     Route: 065
     Dates: end: 20071108
  5. OXYBUTYNIN CHLORIDE [Concomitant]
     Route: 065
     Dates: start: 20071105
  6. DOXYCYCLINE [Concomitant]
     Route: 065
     Dates: start: 20071105
  7. IMODIUM [Concomitant]
     Route: 065
     Dates: start: 20071030, end: 20071104
  8. TYLENOL [Concomitant]
     Route: 065
     Dates: start: 20071107
  9. MAXERAN [Concomitant]
     Route: 048
  10. MULTI-VITAMINS [Concomitant]
     Route: 065
     Dates: start: 20040101
  11. MAGNESIUM SULFATE [Concomitant]
     Route: 065
     Dates: start: 20040101
  12. CALCIUM CITRATE [Concomitant]
     Route: 065
     Dates: start: 20040101
  13. VITAMIN D [Concomitant]
     Route: 065
     Dates: start: 20040101
  14. IRON [Concomitant]
     Route: 065
     Dates: start: 20070920
  15. COD-LIVER OIL [Concomitant]
     Route: 065
     Dates: start: 20070914
  16. VALERIAN [Concomitant]
     Route: 065
     Dates: start: 20070917
  17. PEPTO BISMOL [Concomitant]
     Route: 065
     Dates: start: 20071027, end: 20071028

REACTIONS (4)
  - DIARRHOEA [None]
  - GASTROINTESTINAL HAEMORRHAGE [None]
  - RENAL FAILURE ACUTE [None]
  - SEPSIS [None]
